FAERS Safety Report 4394974-5 (Version None)
Quarter: 2004Q3

REPORT INFORMATION
  Report Type: 
  Country: None (occurrence: None)
  Receive Date: 20040706
  Receipt Date: 20031218
  Transmission Date: 20050211
  Serious: Yes (Hospitalization)
  Sender: FDA-Public Use
  Company Number: 2003AP04350

PATIENT
  Age: 66 Year
  Sex: Female

DRUGS (14)
  1. IRESSA [Suspect]
     Indication: NON-SMALL CELL LUNG CANCER
     Dosage: 250 MG DAILY PO
     Route: 048
     Dates: start: 20031117, end: 20031201
  2. HUSTAGIN [Concomitant]
  3. MEDICON [Concomitant]
  4. MUCOSOLVAN [Concomitant]
  5. SELBEX [Concomitant]
  6. SOLU-MEDROL [Concomitant]
  7. ATARAX [Concomitant]
  8. MYELON [Concomitant]
  9. PRIMPERAN INJ [Concomitant]
  10. PREDNISOLONE [Concomitant]
  11. FLOMOX [Concomitant]
  12. CARBOPLATIN [Concomitant]
  13. VINORELBINE TARTRATE [Concomitant]
  14. RADIOTHERAPY [Concomitant]

REACTIONS (12)
  - CELLULITIS ORBITAL [None]
  - CONDITION AGGRAVATED [None]
  - DISEASE PROGRESSION [None]
  - HEADACHE [None]
  - LUNG DISORDER [None]
  - METASTASES TO EYE [None]
  - MUSCULOSKELETAL STIFFNESS [None]
  - PHOTOPSIA [None]
  - RETINAL DETACHMENT [None]
  - RETINAL HAEMORRHAGE [None]
  - TREATMENT NONCOMPLIANCE [None]
  - VITREOUS FLOATERS [None]
